FAERS Safety Report 12240590 (Version 1)
Quarter: 2016Q2

REPORT INFORMATION
  Report Type: Spontaneous
  Country: US (occurrence: US)
  Receive Date: 20160405
  Receipt Date: 20160405
  Transmission Date: 20160815
  Serious: No
  Sender: FDA-Public Use
  Company Number: US-MACLEODS PHARMACEUTICALS US LTD-MAC2016002458

PATIENT

DRUGS (1)
  1. RIZATRIPTAN BENZOATE 10 MG DISINTEGRATING TABLET [Suspect]
     Active Substance: RIZATRIPTAN BENZOATE
     Indication: MIGRAINE
     Dosage: 10 MG
     Route: 048

REACTIONS (1)
  - Drug ineffective [Unknown]
